FAERS Safety Report 7570713-1 (Version None)
Quarter: 2011Q2

REPORT INFORMATION
  Report Type: 
  Country: None (occurrence: None)
  Receive Date: 20110624
  Receipt Date: 20110613
  Transmission Date: 20111010
  Serious: Yes (Hospitalization)
  Sender: FDA-Public Use
  Company Number: JP-ELI_LILLY_AND_COMPANY-JP200810004354

PATIENT
  Age: 68 Year
  Sex: Male

DRUGS (15)
  1. ALFAROL [Concomitant]
     Indication: OSTEOPOROSIS
     Dosage: 0.25 UG, DAILY (1/D)
     Route: 048
  2. OLMESARTAN MEDOXOMIL [Concomitant]
     Indication: HYPERTENSION
     Dosage: 20 MG, DAILY (1/D)
     Route: 048
  3. MIGLITOL [Concomitant]
     Indication: TYPE 2 DIABETES MELLITUS
     Dosage: 150 MG, DAILY (1/D)
     Route: 048
  4. ALLEGRA [Concomitant]
     Indication: URTICARIA
     Dosage: 120 MG, DAILY (1/D)
     Route: 048
  5. NOVOLIN R [Concomitant]
     Indication: TYPE 2 DIABETES MELLITUS
     Route: 058
     Dates: start: 20060801, end: 20070101
  6. FAMOTIDINE [Concomitant]
     Indication: GASTRITIS
     Dosage: 10 MG, DAILY (1/D)
     Route: 048
  7. ACTOS [Concomitant]
     Dosage: 15 MG, DAILY (1/D)
     Route: 048
  8. MUCOSTA [Concomitant]
     Dosage: 300 MG, DAILY (1/D)
     Route: 048
  9. NORVASC [Concomitant]
     Indication: ANGINA PECTORIS
     Dosage: 10 MG, DAILY (1/D)
     Route: 048
  10. CEROCRAL [Concomitant]
     Dosage: 60 MG, DAILY (1/D)
     Route: 048
  11. ISOSORBIDE DINITRATE [Concomitant]
     Dosage: 20 MG, DAILY (1/D)
     Route: 048
  12. ASPENON [Concomitant]
     Indication: ARRHYTHMIA
     Dosage: 40 MG, DAILY (1/D)
     Route: 048
  13. HUMACART REGULAR [Suspect]
     Indication: TYPE 2 DIABETES MELLITUS
     Route: 058
  14. TICLOPIDINE HCL [Concomitant]
     Indication: CEREBRAL INFARCTION
     Dosage: 200 MG, DAILY (1/D)
     Route: 048
  15. SIGMART [Concomitant]
     Indication: ANGINA PECTORIS
     Dosage: 15 MG, DAILY (1/D)
     Route: 048

REACTIONS (5)
  - BLOOD IMMUNOGLOBULIN E INCREASED [None]
  - DIABETES MELLITUS INADEQUATE CONTROL [None]
  - INJECTION SITE ERYTHEMA [None]
  - INJECTION SITE INDURATION [None]
  - ANTI-INSULIN ANTIBODY INCREASED [None]
